FAERS Safety Report 8894735 (Version 3)
Quarter: 2012Q4

REPORT INFORMATION
  Report Type: 
  Country: GR (occurrence: GR)
  Receive Date: 20121108
  Receipt Date: 20121130
  Transmission Date: 20130627
  Serious: Yes (Other)
  Sender: FDA-Public Use
  Company Number: GR-PFIZER INC-2012246748

PATIENT
  Age: 35 Year
  Sex: Male

DRUGS (2)
  1. VFEND [Suspect]
     Indication: ASPERGILLOSIS
     Dosage: 6 mg/kg, loading dose
     Route: 042
     Dates: start: 201208, end: 201209
  2. VFEND [Suspect]
     Dosage: 4 mg/kg, UNK
     Route: 042

REACTIONS (2)
  - Zygomycosis [Recovering/Resolving]
  - Drug level decreased [Recovering/Resolving]
